FAERS Safety Report 5532697-7 (Version None)
Quarter: 2007Q4

REPORT INFORMATION
  Report Type: 
  Country: None (occurrence: None)
  Receive Date: 20071119
  Receipt Date: 20070905
  Transmission Date: 20080405
  Serious: No
  Sender: FDA-Public Use
  Company Number: TPA2007A01864

PATIENT
  Sex: Male

DRUGS (2)
  1. ROZEREM [Suspect]
     Indication: INSOMNIA
     Dosage: 8 MG, HS, PER ORAL ; 12.5 MG, HS, PER ORAL
     Route: 048
     Dates: start: 20070904
  2. AMBIEN [Concomitant]

REACTIONS (1)
  - MIDDLE INSOMNIA [None]
